FAERS Safety Report 13646881 (Version 2)
Quarter: 2017Q2

REPORT INFORMATION
  Report Type: Spontaneous
  Country: CN (occurrence: CN)
  Receive Date: 20170613
  Receipt Date: 20170615
  Transmission Date: 20170830
  Serious: Yes (Other)
  Sender: FDA-Public Use
  Company Number: PHHY2017CN084357

PATIENT
  Age: 31 Year
  Sex: Male

DRUGS (10)
  1. TROPICAMIDE. [Suspect]
     Active Substance: TROPICAMIDE
     Indication: KERATITIS VIRAL
  2. PRANOPROFEN [Suspect]
     Active Substance: PRANOPROFEN
     Indication: KERATITIS VIRAL
     Dosage: UNK UNK, QID
     Route: 065
  3. NATAMYCIN [Concomitant]
     Active Substance: NATAMYCIN
     Indication: KERATITIS VIRAL
     Dosage: Q1H
     Route: 065
  4. NATAMYCIN [Concomitant]
     Active Substance: NATAMYCIN
     Indication: KERATITIS FUNGAL
  5. TROPICAMIDE. [Suspect]
     Active Substance: TROPICAMIDE
     Indication: KERATITIS FUNGAL
     Dosage: UNK UNK, TID
     Route: 065
  6. ACYCLOVIR. [Concomitant]
     Active Substance: ACYCLOVIR
     Indication: KERATITIS FUNGAL
  7. PRANOPROFEN [Suspect]
     Active Substance: PRANOPROFEN
     Indication: KERATITIS FUNGAL
  8. GANCICLOVIR. [Concomitant]
     Active Substance: GANCICLOVIR
     Indication: KERATITIS VIRAL
     Dosage: UNK UNK, TID
     Route: 065
  9. GANCICLOVIR. [Concomitant]
     Active Substance: GANCICLOVIR
     Indication: KERATITIS FUNGAL
  10. ACYCLOVIR. [Concomitant]
     Active Substance: ACYCLOVIR
     Indication: KERATITIS VIRAL
     Dosage: 400 MG, QID
     Route: 048

REACTIONS (1)
  - Ocular surface disease [Unknown]
